FAERS Safety Report 16850268 (Version 2)
Quarter: 2019Q4

REPORT INFORMATION
  Report Type: Spontaneous
  Country: US (occurrence: US)
  Receive Date: 20190925
  Receipt Date: 20191023
  Transmission Date: 20200122
  Serious: No
  Sender: FDA-Public Use
  Company Number: US-ALKERMES INC.-ALK-2019-004939

PATIENT
  Age: 66 Year
  Sex: Male

DRUGS (1)
  1. ARISTADA [Suspect]
     Active Substance: ARIPIPRAZOLE LAUROXIL
     Indication: PSYCHOTIC DISORDER
     Dosage: 882 MG, UNK
     Route: 030

REACTIONS (2)
  - Product administered at inappropriate site [Not Recovered/Not Resolved]
  - Off label use [Not Recovered/Not Resolved]
